FAERS Safety Report 10045605 (Version 2)
Quarter: 2014Q1

REPORT INFORMATION
  Report Type: Spontaneous
  Country: US (occurrence: US)
  Receive Date: 20140328
  Receipt Date: 20140328
  Transmission Date: 20141002
  Serious: Yes (Hospitalization)
  Sender: FDA-Public Use
  Company Number: US-B.I. PHARMACEUTICALS,INC./RIDGEFIELD-2013-BI-40614BP

PATIENT
  Sex: Male
  Weight: 63.5 kg

DRUGS (9)
  1. PRADAXA [Suspect]
     Indication: ATRIAL FIBRILLATION
     Route: 065
     Dates: start: 201107, end: 201108
  2. PRADAXA [Suspect]
     Indication: ANTICOAGULANT THERAPY
  3. SIMVASTATIN [Concomitant]
     Dosage: 20 MG
     Route: 065
     Dates: start: 2000
  4. ATENOLOL [Concomitant]
     Dosage: 12.5 MG
     Route: 065
     Dates: start: 2000
  5. AMLODIPINE [Concomitant]
     Dosage: 10 MG
     Route: 065
     Dates: start: 2000
  6. ASPIRIN [Concomitant]
     Route: 065
  7. SYMBICORT [Concomitant]
     Dosage: 4 PUF
     Route: 065
  8. PROVENTIL [Concomitant]
     Route: 065
  9. PROCTOZONE-HC [Concomitant]
     Route: 065

REACTIONS (1)
  - Upper gastrointestinal haemorrhage [Unknown]
